FAERS Safety Report 4715030-X (Version None)
Quarter: 2005Q2

REPORT INFORMATION
  Report Type: 
  Country: None (occurrence: None)
  Receive Date: 20050630
  Receipt Date: 20050511
  Transmission Date: 20051028
  Serious: Yes (Death, Hospitalization)
  Sender: FDA-Public Use
  Company Number: 213935

PATIENT
  Age: 68 Year
  Sex: Male
  Weight: 62 kg

DRUGS (1)
  1. AVASTIN [Suspect]
     Indication: COLORECTAL CANCER METASTATIC
     Dosage: 312 MG, Q2W, INTRAVENOUS
     Route: 042
     Dates: start: 20050412, end: 20050412

REACTIONS (2)
  - ABDOMINAL PAIN [None]
  - INTESTINAL PERFORATION [None]
